FAERS Safety Report 13665782 (Version 4)
Quarter: 2017Q3

REPORT INFORMATION
  Report Type: Spontaneous
  Country: SK (occurrence: SK)
  Receive Date: 20170619
  Receipt Date: 20170905
  Transmission Date: 20171127
  Serious: Yes (Other)
  Sender: FDA-Public Use
  Company Number: SK-BAYER-2017-089664

PATIENT
  Age: 47 Year
  Sex: Male
  Weight: 63 kg

DRUGS (4)
  1. XOFIGO [Suspect]
     Active Substance: RADIUM RA-223 DICHLORIDE
     Indication: PROSTATE CANCER
     Dosage: 4.1 MBQ, UNK
     Route: 042
     Dates: start: 20170419, end: 20170419
  2. XOFIGO [Suspect]
     Active Substance: RADIUM RA-223 DICHLORIDE
     Indication: PROSTATE CANCER
     Dosage: 3.6 MBQ, UNK
     Route: 042
     Dates: start: 20170519, end: 20170519
  3. DEGARELIX [Concomitant]
     Active Substance: DEGARELIX
  4. XGEVA [Concomitant]
     Active Substance: DENOSUMAB

REACTIONS (9)
  - Fatigue [Not Recovered/Not Resolved]
  - Bone pain [None]
  - Diarrhoea [Recovered/Resolved]
  - Leukopenia [Recovering/Resolving]
  - Thrombocytopenia [Not Recovered/Not Resolved]
  - Bone pain [Not Recovered/Not Resolved]
  - Weight decreased [Recovered/Resolved]
  - Bone pain [Recovered/Resolved]
  - Anaemia [Recovering/Resolving]

NARRATIVE: CASE EVENT DATE: 201704
